FAERS Safety Report 7627622-9 (Version None)
Quarter: 2011Q3

REPORT INFORMATION
  Report Type: 
  Country: None (occurrence: None)
  Receive Date: 20110721
  Receipt Date: 20110713
  Transmission Date: 20111222
  Serious: Yes (Other)
  Sender: FDA-Public Use
  Company Number: US-SANOFI-AVENTIS-2011SA045081

PATIENT
  Sex: Female

DRUGS (6)
  1. ALLOPURINOL [Concomitant]
  2. LOVASTATIN [Concomitant]
  3. ALLEGRA D 24 HOUR [Suspect]
     Route: 048
     Dates: start: 20110706
  4. FEXOFENADINE HCL [Suspect]
     Route: 048
     Dates: start: 20030101, end: 20110701
  5. ATENOLOL [Concomitant]
  6. CITALOPRAM HYDROBROMIDE [Concomitant]

REACTIONS (12)
  - UNDERDOSE [None]
  - MEDICATION ERROR [None]
  - SINUS CONGESTION [None]
  - OROPHARYNGEAL PAIN [None]
  - ANGIOEDEMA [None]
  - PHARYNGEAL OEDEMA [None]
  - COUGH [None]
  - THERAPEUTIC RESPONSE DECREASED [None]
  - CONGENITAL CYSTIC KIDNEY DISEASE [None]
  - SWOLLEN TONGUE [None]
  - RENAL IMPAIRMENT [None]
  - NASOPHARYNGITIS [None]
